FAERS Safety Report 11886131 (Version 3)
Quarter: 2016Q1

REPORT INFORMATION
  Report Type: Spontaneous
  Country: US (occurrence: US)
  Receive Date: 20160104
  Receipt Date: 20160311
  Transmission Date: 20160526
  Serious: Yes (Other)
  Sender: FDA-Public Use
  Company Number: US-PFIZER INC-2015067605

PATIENT
  Age: 57 Year
  Sex: Male

DRUGS (23)
  1. ASA [Concomitant]
     Active Substance: ASPIRIN
     Dosage: 325 MG, 1X/DAY
     Route: 048
  2. FLOMAX [Concomitant]
     Active Substance: TAMSULOSIN HYDROCHLORIDE
     Indication: WHEEZING
     Dosage: 0.4 MG, 1X/DAY
     Route: 048
  3. URECHOLINE [Concomitant]
     Active Substance: BETHANECHOL CHLORIDE
     Dosage: 25 MG, 3X/DAY
     Route: 048
  4. ASPIRIN. [Concomitant]
     Active Substance: ASPIRIN
     Dosage: UNK
  5. SUTENT [Suspect]
     Active Substance: SUNITINIB MALATE
     Indication: METASTATIC RENAL CELL CARCINOMA
     Dosage: 25 MG, CYCLIC (25 MG DAILY, ON 2 WEEKS AND OFF 2 WEEKS)
     Route: 048
  6. LIPITOR [Concomitant]
     Active Substance: ATORVASTATIN CALCIUM
     Dosage: 10 MG, 1X/DAY
     Route: 048
  7. UCERIS [Concomitant]
     Active Substance: BUDESONIDE
     Dosage: 9 MG, 1X/DAY
     Route: 048
  8. ZOLOFT [Concomitant]
     Active Substance: SERTRALINE HYDROCHLORIDE
     Dosage: 25 MG, 1X/DAY
     Route: 048
  9. LACTOBACILLUS [Concomitant]
     Active Substance: LACTOBACILLUS ACIDOPHILUS
     Dosage: 1 DF, DAILY
     Route: 048
  10. OCEAN SALINE NASAL SPRAY [Concomitant]
     Active Substance: SODIUM CHLORIDE
     Indication: NASAL CONGESTION
     Dosage: UNK UNK, AS NEEDED  (0.65% ONE SPRAY EACH NOSTRIL PRN)
  11. LIZINOPRIL [Concomitant]
     Dosage: UNK
  12. DEPAKOTE ER [Concomitant]
     Active Substance: DIVALPROEX SODIUM
     Dosage: 1000 MG, DAILY (500 MG PO GIVE TWO TABLETS DAILY)
     Route: 048
  13. PEG [Concomitant]
     Active Substance: POLYETHYLENE GLYCOLS
     Dosage: UNK
  14. PROTONIX [Concomitant]
     Active Substance: PANTOPRAZOLE SODIUM
     Dosage: 40 MG, 1X/DAY
     Route: 048
  15. ULTRAM [Concomitant]
     Active Substance: TRAMADOL HYDROCHLORIDE
     Indication: PAIN
     Dosage: 50 MG, AS NEEDED (Q 6 HRS PRN)
  16. ALDACTONE [Concomitant]
     Active Substance: SPIRONOLACTONE
     Dosage: 25 MG, 1X/DAY
     Route: 048
  17. PROVENTIL [Concomitant]
     Active Substance: ALBUTEROL
     Indication: WHEEZING
     Dosage: 180 UG, AS NEEDED (90MCG INHALER 2 PUFFS INTO LUNGS Q 6 HRS PRN)
     Route: 048
  18. DESYREL [Concomitant]
     Active Substance: TRAZODONE HYDROCHLORIDE
     Dosage: 75 MG (150MG, GIVE HALF-TABLET FOR 75 MG DOSE)
     Route: 048
  19. LIALDA [Concomitant]
     Active Substance: MESALAMINE
     Dosage: 2400 MG, 2X/DAY (1200MG, TAKE TWO TABLETS BID)
     Route: 048
  20. ZOFRAN [Concomitant]
     Active Substance: ONDANSETRON HYDROCHLORIDE
     Indication: NAUSEA
     Dosage: 8 MG, AS NEEDED (TAKE ONE Q 8 HRS PRN)
  21. NORVASC [Concomitant]
     Active Substance: AMLODIPINE BESYLATE
     Dosage: UNK
  22. LASIX [Concomitant]
     Active Substance: FUROSEMIDE
     Dosage: 40 MG, 1X/DAY
     Route: 048
  23. ZESTRIL [Concomitant]
     Active Substance: LISINOPRIL
     Dosage: 40 MG, 1X/DAY
     Route: 048

REACTIONS (1)
  - Cerebrovascular accident [Unknown]

NARRATIVE: CASE EVENT DATE: 201509
